FAERS Safety Report 19295673 (Version 1)
Quarter: 2021Q2

REPORT INFORMATION
  Report Type: Spontaneous
  Country: FR (occurrence: FR)
  Receive Date: 20210524
  Receipt Date: 20210524
  Transmission Date: 20210717
  Serious: Yes (Hospitalization)
  Sender: FDA-Public Use
  Company Number: FR-MYLANLABS-2021M1029703

PATIENT
  Age: 45 Year
  Sex: Female
  Weight: 95 kg

DRUGS (5)
  1. PARACETAMOL B BRAUN [Suspect]
     Active Substance: ACETAMINOPHEN
     Indication: PAIN
     Dosage: 1 DOSAGE FORM, Q6H
     Route: 042
     Dates: start: 20201019, end: 20201022
  2. CEFAZOLINE PANPHARMA [Suspect]
     Active Substance: CEFAZOLIN SODIUM
     Indication: ANTIBIOTIC PROPHYLAXIS
     Dosage: 3 GRAM, QD
     Route: 042
     Dates: start: 20201019, end: 20201022
  3. PANTOPRAZOLE SODIUM. [Suspect]
     Active Substance: PANTOPRAZOLE SODIUM
     Indication: PRODUCT USED FOR UNKNOWN INDICATION
     Dosage: 1 DOSAGE FORM, QD
     Route: 048
     Dates: start: 20201019, end: 20201030
  4. RIFADINE                           /00146902/ [Suspect]
     Active Substance: RIFAMPIN SODIUM
     Indication: ANTIBIOTIC PROPHYLAXIS
     Dosage: 2400 MILLIGRAM, QD
     Route: 042
     Dates: start: 20201019
  5. PREGABALIN MYLAN 75 MG HARD CAPSULES [Suspect]
     Active Substance: PREGABALIN
     Indication: PAIN
     Dosage: 2 DOSAGE FORM, QD
     Route: 048
     Dates: start: 20201019, end: 20201030

REACTIONS (3)
  - Gamma-glutamyltransferase increased [Recovered/Resolved]
  - Cholestasis [Recovered/Resolved]
  - Blood alkaline phosphatase increased [Recovered/Resolved]

NARRATIVE: CASE EVENT DATE: 20201021
